FAERS Safety Report 7263930-1 (Version None)
Quarter: 2011Q1

REPORT INFORMATION
  Report Type: 
  Country: None (occurrence: None)
  Receive Date: 20110130
  Receipt Date: 20101030
  Transmission Date: 20110831
  Serious: No
  Sender: FDA-Public Use
  Company Number: US-ABBOTT-10P-163-0682506-00

PATIENT
  Age: 68 Year
  Sex: Female

DRUGS (17)
  1. ENTOCORT EC [Concomitant]
     Indication: PRODUCT USED FOR UNKNOWN INDICATION
  2. PLAQUENIL [Concomitant]
     Indication: PRODUCT USED FOR UNKNOWN INDICATION
  3. ASPIRIN [Concomitant]
     Indication: PRODUCT USED FOR UNKNOWN INDICATION
  4. PREDNISONE [Concomitant]
     Indication: PRODUCT USED FOR UNKNOWN INDICATION
     Dosage: QOD
  5. FOLIC ACID [Concomitant]
     Indication: PRODUCT USED FOR UNKNOWN INDICATION
  6. PREVACID [Concomitant]
     Indication: PRODUCT USED FOR UNKNOWN INDICATION
  7. CLARITIN [Concomitant]
     Indication: PRODUCT USED FOR UNKNOWN INDICATION
  8. BENICAR [Concomitant]
     Indication: PRODUCT USED FOR UNKNOWN INDICATION
  9. HYDROCHLOROTHIAZIDE [Concomitant]
     Indication: PRODUCT USED FOR UNKNOWN INDICATION
  10. ZOLOFT [Concomitant]
     Indication: PRODUCT USED FOR UNKNOWN INDICATION
  11. ALPRAZOLAM [Concomitant]
     Indication: PRODUCT USED FOR UNKNOWN INDICATION
  12. SYNTHROID [Concomitant]
     Indication: PRODUCT USED FOR UNKNOWN INDICATION
  13. HUMIRA [Suspect]
     Indication: RHEUMATOID ARTHRITIS
     Dates: start: 20100923
  14. IMURAN [Concomitant]
     Indication: PRODUCT USED FOR UNKNOWN INDICATION
  15. FEMHART [Concomitant]
     Indication: PRODUCT USED FOR UNKNOWN INDICATION
     Dosage: 1/5MG
  16. VITAMIN B-12 [Concomitant]
     Indication: PRODUCT USED FOR UNKNOWN INDICATION
  17. VIT D [Concomitant]
     Indication: PRODUCT USED FOR UNKNOWN INDICATION

REACTIONS (2)
  - OROPHARYNGEAL BLISTERING [None]
  - URINARY TRACT INFECTION [None]
